FAERS Safety Report 9725727 (Version 1)
Quarter: 2013Q4

REPORT INFORMATION
  Report Type: Spontaneous
  Country: US (occurrence: None)
  Receive Date: 20131118
  Receipt Date: 20131118
  Transmission Date: 20140711
  Serious: Yes (Other)
  Sender: FDA-Public Use
  Company Number: 2013038948

PATIENT
  Age: 12 Year
  Sex: Male
  Weight: 46.27 kg

DRUGS (12)
  1. HIZENTRA (IMMUNOGLOBULIN HUMAN NORMAL) [Suspect]
     Indication: IMMUNODEFICIENCY COMMON VARIABLE
     Dosage: 1 G 1X/WEEK, 2 SITES OVER 1-2 HOURS, TOTAL DAILY DOSE 7 G)
     Route: 058
  2. DIPHENHYDRAMINE (DIPHENHYDRAMINE) [Concomitant]
  3. EPI PEN (EPINEPHRINE) [Concomitant]
  4. LMX (LIDOCAINE) [Concomitant]
  5. RIFAMPIN (RIFAMPICIN) [Concomitant]
  6. DOXYCYCLINE (DOXYCYCLINE) [Concomitant]
  7. ACETAMINOPHEN (PARACETAMOL) [Concomitant]
  8. PREVACID (LANSOPRAZOLE) [Concomitant]
  9. HUMALOG (HUMALOG MIX /01500801/) [Concomitant]
  10. ZOLOFT (SERTRALINE) [Concomitant]
  11. REMERON (MIRTAZAPINE) [Concomitant]
  12. VITAMIN D (ERGOCALCIFEROL) [Concomitant]

REACTIONS (1)
  - Blood glucose increased [None]
